FAERS Safety Report 9639409 (Version 1)
Quarter: 2013Q4

REPORT INFORMATION
  Report Type: Spontaneous
  Country: GB (occurrence: GB)
  Receive Date: 20131022
  Receipt Date: 20131022
  Transmission Date: 20140711
  Serious: Yes (Other)
  Sender: FDA-Public Use
  Company Number: PHHY2013GB113798

PATIENT
  Age: 53 Year
  Sex: Female
  Weight: 75 kg

DRUGS (4)
  1. DOXYCYCLINE [Suspect]
     Indication: CHRONIC OBSTRUCTIVE PULMONARY DISEASE
     Dosage: 100 MG, BID
     Route: 048
     Dates: start: 20130918, end: 20130924
  2. FOSTAIR [Concomitant]
     Dosage: 2 DF, BID
  3. VENTOLIN [Concomitant]
     Route: 055
  4. RANITIDINE [Concomitant]
     Dosage: 150 MG, BID

REACTIONS (2)
  - Cheilitis [Recovered/Resolved]
  - Oral candidiasis [Recovered/Resolved]
